FAERS Safety Report 4951697-9 (Version None)
Quarter: 2006Q1

REPORT INFORMATION
  Report Type: 
  Country: None (occurrence: None)
  Receive Date: 20060317
  Receipt Date: 20060308
  Transmission Date: 20060701
  Serious: Yes (Death, Hospitalization)
  Sender: FDA-Public Use
  Company Number: HQ1694810APR2002

PATIENT
  Age: 78 Year
  Sex: Male
  Weight: 63.1 kg

DRUGS (21)
  1. MYLOTARG [Suspect]
     Indication: ACUTE MYELOID LEUKAEMIA
     Dosage: 15 MG ONE TIME PER ONE DOSE INTRAVENOUS
     Route: 042
     Dates: start: 20020404, end: 20020404
  2. ACETAMINOPHEN [Concomitant]
  3. DOCUSATE SODIUM (DOCUSATE SODIUM) [Concomitant]
  4. DIPHENHYDRAMINE HCL [Concomitant]
  5. HYDROXYUREA [Concomitant]
  6. ALLOPURINOL [Concomitant]
  7. TRAZODONE HCL [Concomitant]
  8. PERCOCET [Concomitant]
  9. SEREVENT [Concomitant]
  10. NORVASC [Concomitant]
  11. AMBIEN [Concomitant]
  12. AVAPRO [Concomitant]
  13. DIFLUCAN [Concomitant]
  14. ACYCLOVIR [Concomitant]
  15. FOLVITE (FOLIC ACID) [Concomitant]
  16. PEPCID [Concomitant]
  17. MICRO-K LS (POTASSIUM CHLORIDE) [Concomitant]
  18. MULTIVITAMINS, PLAIN (MULTIVITAMINS, PLAIN) [Concomitant]
  19. PULMICORT [Concomitant]
  20. ATROVENT [Concomitant]
  21. URSODIOL (URSODEOXYCHOLIC ACID) [Concomitant]

REACTIONS (16)
  - ABDOMINAL DISCOMFORT [None]
  - ACUTE MYELOID LEUKAEMIA [None]
  - ASCITES [None]
  - BLOOD POTASSIUM DECREASED [None]
  - BLOOD UREA INCREASED [None]
  - BLOOD URIC ACID INCREASED [None]
  - DECREASED APPETITE [None]
  - FEBRILE NEUTROPENIA [None]
  - HAEMATEMESIS [None]
  - HAEMORRHAGE [None]
  - INFUSION RELATED REACTION [None]
  - MALIGNANT NEOPLASM PROGRESSION [None]
  - MELAENA [None]
  - SPLEEN DISORDER [None]
  - SPLENIC HAEMORRHAGE [None]
  - TUMOUR LYSIS SYNDROME [None]
